FAERS Safety Report 8958497 (Version 1)
Quarter: 2012Q4

REPORT INFORMATION
  Report Type: Spontaneous
  Country: US (occurrence: None)
  Receive Date: 20121205
  Receipt Date: 20121205
  Transmission Date: 20130627
  Serious: No
  Sender: FDA-Public Use
  Company Number: None

PATIENT
  Sex: Male
  Weight: 97.52 kg

DRUGS (2)
  1. AVODART [Suspect]
     Indication: ENLARGED PROSTATE
     Dosage: one 0.5 mg cap daily oral
     Route: 048
     Dates: start: 201007, end: 20121114
  2. AVODART [Suspect]
     Indication: BPH
     Dosage: one 0.5 mg cap daily oral
     Route: 048
     Dates: start: 201007, end: 20121114

REACTIONS (3)
  - Arthralgia [None]
  - Arthralgia [None]
  - Musculoskeletal pain [None]
